FAERS Safety Report 20635162 (Version 3)
Quarter: 2022Q2

REPORT INFORMATION
  Report Type: Report from Study
  Country: AR (occurrence: AR)
  Receive Date: 20220325
  Receipt Date: 20220510
  Transmission Date: 20220721
  Serious: Yes (Disabling)
  Sender: FDA-Public Use
  Company Number: AR-NOVARTISPH-NVSC2021AR235036

PATIENT
  Age: 72 Year
  Sex: Male

DRUGS (2)
  1. COSENTYX [Suspect]
     Active Substance: SECUKINUMAB
     Indication: Psoriasis
     Dosage: 300 MG, QMO
     Route: 058
     Dates: start: 20210903
  2. METHOTREXATE [Concomitant]
     Active Substance: METHOTREXATE
     Indication: Product used for unknown indication
     Dosage: 15 MG, QW
     Route: 048
     Dates: start: 20210310

REACTIONS (7)
  - Arthralgia [Unknown]
  - Stress [Unknown]
  - Nervousness [Unknown]
  - Haematoma [Unknown]
  - Skin atrophy [Unknown]
  - Psoriasis [Unknown]
  - Myalgia [Unknown]

NARRATIVE: CASE EVENT DATE: 20220401
